FAERS Safety Report 7193906-4 (Version None)
Quarter: 2010Q4

REPORT INFORMATION
  Report Type: 
  Country: None (occurrence: None)
  Receive Date: 20101223
  Receipt Date: 20100913
  Transmission Date: 20110411
  Serious: No
  Sender: FDA-Public Use
  Company Number: US-AMGEN-TCS437703

PATIENT

DRUGS (6)
  1. ENBREL [Suspect]
     Indication: RHEUMATOID ARTHRITIS
     Dosage: UNK UNK, UNK
  2. CELECOXIB [Concomitant]
     Dosage: UNK UNK, UNK
  3. SPIRONOLACTONE [Concomitant]
     Dosage: UNK UNK, UNK
  4. FOLIC ACID [Concomitant]
     Dosage: UNK UNK, UNK
  5. ALENDRONATE SODIUM [Concomitant]
     Dosage: UNK UNK, UNK
  6. ACETAMINOPHEN [Concomitant]
     Dosage: UNK UNK, UNK

REACTIONS (1)
  - EAR INFECTION [None]
